FAERS Safety Report 5004410-3 (Version None)
Quarter: 2006Q2

REPORT INFORMATION
  Report Type: 
  Country: None (occurrence: None)
  Receive Date: 20060516
  Receipt Date: 20060516
  Transmission Date: 20061013
  Serious: Yes (Life-Threatening, Hospitalization, Other)
  Sender: FDA-Public Use
  Company Number: None

PATIENT
  Age: 78 Year
  Sex: Male
  Weight: 68.0396 kg

DRUGS (2)
  1. PHENERGAN [Suspect]
     Indication: NAUSEA
     Dosage: HOSPITAL, ONE DOSE
     Dates: start: 20051112
  2. XANAX [Concomitant]

REACTIONS (10)
  - AMNESIA [None]
  - ANAPHYLACTIC SHOCK [None]
  - APHASIA [None]
  - BLOOD PRESSURE INCREASED [None]
  - CANDIDIASIS [None]
  - PAIN [None]
  - RASH ERYTHEMATOUS [None]
  - RASH GENERALISED [None]
  - SWELLING FACE [None]
  - SWOLLEN TONGUE [None]
